FAERS Safety Report 9358195 (Version 1)
Quarter: 2013Q2

REPORT INFORMATION
  Report Type: Spontaneous
  Country: US (occurrence: None)
  Receive Date: 20130619
  Receipt Date: 20130619
  Transmission Date: 20140414
  Serious: Yes (Other)
  Sender: FDA-Public Use
  Company Number: None

PATIENT
  Age: 25 Year
  Sex: Female
  Weight: 127.01 kg

DRUGS (2)
  1. ACCUTANE? [Suspect]
     Indication: ACNE
     Dates: start: 20000901, end: 20010202
  2. ACCUTANE? [Concomitant]

REACTIONS (3)
  - Anxiety [None]
  - Depression [None]
  - Trichotillomania [None]
